FAERS Safety Report 4286126-4 (Version None)
Quarter: 2004Q1

REPORT INFORMATION
  Report Type: 
  Country: None (occurrence: None)
  Receive Date: 20040120
  Receipt Date: 20030611
  Transmission Date: 20041129
  Serious: Yes (Hospitalization)
  Sender: FDA-Public Use
  Company Number: BDI-005214

PATIENT
  Age: 24 Year
  Sex: Female
  Weight: 57 kg

DRUGS (4)
  1. PROHANCE [Suspect]
     Indication: NUCLEAR MAGNETIC RESONANCE IMAGING
     Dosage: 13 ML ONCE IV
     Route: 042
     Dates: start: 20030606, end: 20030606
  2. PROHANCE [Suspect]
     Indication: PITUITARY CYST
     Dosage: 13 ML ONCE IV
     Route: 042
     Dates: start: 20030606, end: 20030606
  3. PROHANCE [Suspect]
     Indication: PITUITARY ENLARGEMENT
     Dosage: 13 ML ONCE IV
     Route: 042
     Dates: start: 20030606, end: 20030606
  4. ORAL CONTRACEPTIVE PILLS [Concomitant]

REACTIONS (5)
  - BRADYCARDIA [None]
  - CHEST PAIN [None]
  - CHILLS [None]
  - DYSPNOEA [None]
  - PULSE PRESSURE DECREASED [None]
